FAERS Safety Report 19675406 (Version 2)
Quarter: 2021Q3

REPORT INFORMATION
  Report Type: Spontaneous
  Country: US (occurrence: US)
  Receive Date: 20210809
  Receipt Date: 20210823
  Transmission Date: 20211014
  Serious: Yes (Other)
  Sender: FDA-Public Use
  Company Number: US-LUPIN PHARMACEUTICALS INC.-2021-13717

PATIENT
  Sex: Female
  Weight: 65.76 kg

DRUGS (1)
  1. HYDROCODONE BITARTRATE AND ACETAMINOPHEN TABLETS USP, 5 MG/325 MG [Suspect]
     Active Substance: ACETAMINOPHEN\HYDROCODONE BITARTRATE
     Indication: ENDOMETRIOSIS
     Dosage: 1 DOSAGE FORM, QID
     Route: 048
     Dates: start: 20210429, end: 20210429

REACTIONS (8)
  - Dyspnoea [Unknown]
  - Pain [Unknown]
  - Nausea [Unknown]
  - Near death experience [Unknown]
  - Vomiting [Unknown]
  - Hyperhidrosis [Unknown]
  - Drug ineffective [Unknown]
  - Throat tightness [Recovered/Resolved]
